FAERS Safety Report 5675517-2 (Version None)
Quarter: 2008Q2

REPORT INFORMATION
  Report Type: 
  Country: None (occurrence: None)
  Receive Date: 20080311
  Receipt Date: 20070627
  Transmission Date: 20081010
  Serious: Yes (Other)
  Sender: FDA-Public Use
  Company Number: PHEH2007US09402

PATIENT
  Age: 33 Year
  Sex: Female

DRUGS (3)
  1. TRILEPTAL [Suspect]
     Indication: MENTAL DISORDER
     Dosage: ORAL,600 MG,QD,900 MG,QD,ORAL
     Route: 048
     Dates: end: 20070625
  2. TRILEPTAL [Suspect]
     Indication: MENTAL DISORDER
     Dosage: ORAL,600 MG,QD,900 MG,QD,ORAL
     Route: 048
     Dates: start: 20070613
  3. TRILEPTAL [Suspect]
     Indication: MENTAL DISORDER
     Dosage: ORAL,600 MG,QD,900 MG,QD,ORAL
     Route: 048
     Dates: start: 20070626

REACTIONS (5)
  - ASTHENIA [None]
  - DIZZINESS [None]
  - IMMOBILE [None]
  - NAUSEA [None]
  - PRURITUS [None]
